FAERS Safety Report 11259772 (Version 1)
Quarter: 2015Q3

REPORT INFORMATION
  Report Type: Spontaneous
  Country: US (occurrence: None)
  Receive Date: 20150709
  Receipt Date: 20150709
  Transmission Date: 20151125
  Serious: Yes (Life-Threatening, Disabling, Other)
  Sender: FDA-Public Use
  Company Number: None

PATIENT
  Age: 58 Year
  Sex: Female
  Weight: 106.14 kg

DRUGS (15)
  1. FORTEO [Suspect]
     Active Substance: TERIPARATIDE
     Indication: OSTEOPOROSIS
     Route: 030
     Dates: start: 20150608, end: 20150611
  2. LOSARTAN AND HYDROCHLOROTHIAZIDE [Concomitant]
     Active Substance: HYDROCHLOROTHIAZIDE\LOSARTAN POTASSIUM
  3. PREDNISONE. [Concomitant]
     Active Substance: PREDNISONE
  4. VITAMIN D [Concomitant]
     Active Substance: CHOLECALCIFEROL
  5. OMEGA 3 [Concomitant]
     Active Substance: OMEGA-3 FATTY ACIDS
  6. FORTEO [Suspect]
     Active Substance: TERIPARATIDE
     Indication: FRACTURE
     Route: 030
     Dates: start: 20150608, end: 20150611
  7. TOPROL XL [Concomitant]
     Active Substance: METOPROLOL SUCCINATE
  8. TYLENOL [Concomitant]
     Active Substance: ACETAMINOPHEN
  9. METFORMIN [Concomitant]
     Active Substance: METFORMIN HYDROCHLORIDE
  10. FOLTX [Concomitant]
     Active Substance: CYANOCOBALAMIN CO-57\FOLIC ACID\PYRIDOXINE HYDROCHLORIDE
  11. ULTRAM [Concomitant]
     Active Substance: TRAMADOL HYDROCHLORIDE
  12. MULTI VITAMIN [Concomitant]
     Active Substance: VITAMINS
  13. FORSEMIDE [Concomitant]
  14. LIVALO [Concomitant]
     Active Substance: PITAVASTATIN CALCIUM
  15. COUMADIN [Concomitant]
     Active Substance: WARFARIN SODIUM

REACTIONS (11)
  - Bone pain [None]
  - Muscle spasms [None]
  - Nausea [None]
  - Pain [None]
  - Chest pain [None]
  - Confusional state [None]
  - Dizziness [None]
  - Headache [None]
  - Vomiting [None]
  - Bladder spasm [None]
  - Back pain [None]

NARRATIVE: CASE EVENT DATE: 20150610
